FAERS Safety Report 9460863 (Version 1)
Quarter: 2013Q3

REPORT INFORMATION
  Report Type: Spontaneous
  Country: SE (occurrence: US)
  Receive Date: 20130816
  Receipt Date: 20130816
  Transmission Date: 20140515
  Serious: Yes (Death)
  Sender: FDA-Public Use
  Company Number: SE-ROCHE-1261016

PATIENT
  Sex: Female

DRUGS (6)
  1. KLONOPIN [Suspect]
     Indication: ANXIETY
     Route: 065
  2. TOPAMAX [Concomitant]
     Indication: CEREBROVASCULAR ACCIDENT
     Route: 065
  3. FLUOXETINE [Concomitant]
     Indication: DEPRESSION
     Route: 065
  4. CARBAMAZEPINE [Concomitant]
     Indication: DIABETES MELLITUS
     Route: 065
  5. PROPRANOLOL [Concomitant]
     Indication: HYPERTENSION
     Route: 065
  6. PROPRANOLOL [Concomitant]
     Indication: MYOCARDIAL INFARCTION

REACTIONS (2)
  - Pneumonia [Fatal]
  - Anaemia [Fatal]
